FAERS Safety Report 15951894 (Version 1)
Quarter: 2019Q1

REPORT INFORMATION
  Report Type: Spontaneous
  Country: AT (occurrence: AT)
  Receive Date: 20190212
  Receipt Date: 20190212
  Transmission Date: 20190417
  Serious: Yes (Other)
  Sender: FDA-Public Use
  Company Number: AT-PFIZER INC-2019057471

PATIENT
  Age: 50 Year
  Sex: Female

DRUGS (1)
  1. PREGABALIN. [Suspect]
     Active Substance: PREGABALIN
     Indication: ANXIETY DISORDER
     Dosage: MAXIMUM 250 MG
     Dates: start: 201701, end: 20170308

REACTIONS (12)
  - Apparent death [Unknown]
  - Tremor [Unknown]
  - Fluid retention [Unknown]
  - Dyspnoea [Unknown]
  - Gait disturbance [Unknown]
  - Product use in unapproved indication [Unknown]
  - Feeling abnormal [Not Recovered/Not Resolved]
  - Impaired driving ability [Not Recovered/Not Resolved]
  - Fatigue [Not Recovered/Not Resolved]
  - Paralysis [Not Recovered/Not Resolved]
  - Hypertonia [Not Recovered/Not Resolved]
  - Urinary retention [Unknown]
